FAERS Safety Report 25516112 (Version 1)
Quarter: 2025Q3

REPORT INFORMATION
  Report Type: Report from Study
  Country: US (occurrence: US)
  Receive Date: 20250704
  Receipt Date: 20250704
  Transmission Date: 20251020
  Serious: Yes (Hospitalization, Other)
  Sender: GALDERMA
  Company Number: US-GALDERMA-US2025010995

PATIENT

DRUGS (2)
  1. NEMOLIZUMAB [Suspect]
     Active Substance: NEMOLIZUMAB
     Indication: Neurodermatitis
     Route: 058
  2. NEMOLIZUMAB [Suspect]
     Active Substance: NEMOLIZUMAB
     Route: 058
     Dates: start: 202505, end: 202505

REACTIONS (5)
  - Infection [Recovering/Resolving]
  - Myocardial necrosis marker increased [Recovering/Resolving]
  - White blood cell count abnormal [Recovering/Resolving]
  - Dehydration [Recovering/Resolving]
  - Pain [Unknown]
